FAERS Safety Report 4454942-1 (Version None)
Quarter: 2004Q3

REPORT INFORMATION
  Report Type: 
  Country: None (occurrence: None)
  Receive Date: 20040824
  Receipt Date: 20040506
  Transmission Date: 20050211
  Serious: No
  Sender: FDA-Public Use
  Company Number: SU-2004-002346

PATIENT
  Age: 88 Year
  Sex: Female
  Weight: 66.2252 kg

DRUGS (10)
  1. BENICAR [Suspect]
     Indication: HYPERTENSION
     Dosage: 20 MG QD PO
     Route: 048
     Dates: start: 20040503, end: 20040505
  2. ZETIA [Concomitant]
  3. DEMADEX [Concomitant]
  4. VIOXX [Concomitant]
  5. BEXTRA [Concomitant]
  6. HYDRALAZINE HCL [Concomitant]
  7. MULTI-VITAMINS [Concomitant]
  8. VITAMIN C [Concomitant]
  9. MAGNESIUM [Concomitant]
  10. ZINC [Concomitant]

REACTIONS (1)
  - RASH GENERALISED [None]
